FAERS Safety Report 16898854 (Version 1)
Quarter: 2019Q4

REPORT INFORMATION
  Report Type: Spontaneous
  Country: US (occurrence: US)
  Receive Date: 20191008
  Receipt Date: 20191008
  Transmission Date: 20200122
  Serious: Yes (Other)
  Sender: FDA-Public Use
  Company Number: None

PATIENT
  Sex: Male

DRUGS (2)
  1. ATORVASTATIN 10MG [Suspect]
     Active Substance: ATORVASTATIN
  2. ROSUVASTATIN 10MG [Suspect]
     Active Substance: ROSUVASTATIN

REACTIONS (1)
  - Myalgia [None]
